FAERS Safety Report 5424368-2 (Version None)
Quarter: 2007Q3

REPORT INFORMATION
  Report Type: 
  Country: None (occurrence: None)
  Receive Date: 20070822
  Receipt Date: 20070706
  Transmission Date: 20080115
  Serious: Yes (Death, Hospitalization)
  Sender: FDA-Public Use
  Company Number: 6036566

PATIENT
  Age: 65 Year
  Sex: Female

DRUGS (2)
  1. DICLOFENAC SODIUM [Suspect]
     Indication: DRUG USE FOR UNKNOWN INDICATION
     Dosage: 50 MG
  2. PENTOSAN POLYSULFATE [Suspect]

REACTIONS (16)
  - ACUTE PRERENAL FAILURE [None]
  - BLOOD PARATHYROID HORMONE INCREASED [None]
  - CONFUSIONAL STATE [None]
  - CYSTITIS [None]
  - DISEASE RECURRENCE [None]
  - HYPERKALAEMIA [None]
  - HYPOALDOSTERONISM [None]
  - HYPONATRAEMIA [None]
  - KIDNEY ENLARGEMENT [None]
  - LOWER RESPIRATORY TRACT INFECTION [None]
  - LUNG CONSOLIDATION [None]
  - METABOLIC ACIDOSIS [None]
  - NEPHROCALCINOSIS [None]
  - NEPHROLITHIASIS [None]
  - PNEUMONIA [None]
  - RENAL TUBULAR ACIDOSIS [None]
